FAERS Safety Report 10161341 (Version 1)
Quarter: 2014Q2

REPORT INFORMATION
  Report Type: Spontaneous
  Country: FR (occurrence: FR)
  Receive Date: 20140509
  Receipt Date: 20140509
  Transmission Date: 20141212
  Serious: Yes (Disabling)
  Sender: FDA-Public Use
  Company Number: FR-ROCHE-1396262

PATIENT
  Age: 54 Year
  Sex: Male

DRUGS (11)
  1. MABTHERA [Suspect]
     Indication: B-CELL LYMPHOMA
     Route: 042
     Dates: start: 20131018, end: 20140114
  2. CISPLATINE MYLAN [Suspect]
     Indication: B-CELL LYMPHOMA
     Route: 042
     Dates: start: 20131018, end: 20140114
  3. CYTARABINE EBEWE [Suspect]
     Indication: B-CELL LYMPHOMA
     Route: 042
     Dates: start: 20131018, end: 20140114
  4. ARACYTINE [Suspect]
     Indication: B-CELL LYMPHOMA
     Route: 037
     Dates: start: 20131017, end: 20140114
  5. METHOTREXATE [Suspect]
     Indication: B-CELL LYMPHOMA
     Route: 037
     Dates: start: 20130317, end: 20140114
  6. MINIRIN [Concomitant]
     Route: 048
  7. HYDROCORTISONE [Concomitant]
     Route: 048
  8. LEVETIRACETAM MYLAN [Concomitant]
     Route: 048
  9. LEVOTHYROX [Concomitant]
     Route: 048
  10. EUPANTOL [Concomitant]
     Route: 048
  11. LOVENOX [Concomitant]
     Route: 058

REACTIONS (1)
  - Deafness bilateral [Unknown]
